FAERS Safety Report 7796779-1 (Version None)
Quarter: 2011Q4

REPORT INFORMATION
  Report Type: 
  Country: None (occurrence: None)
  Receive Date: 20111003
  Receipt Date: 20110929
  Transmission Date: 20120403
  Serious: Yes (Death)
  Sender: FDA-Public Use
  Company Number: 30_11

PATIENT
  Age: 1 Year
  Sex: Female

DRUGS (1)
  1. DRAXIMAGE MAA KIT FOR PREP. OF TECHNETIUM TC99 ALBUM [Suspect]
     Indication: VENTILATION/PERFUSION SCAN
     Dosage: INTRAVENOUS
     Route: 042
     Dates: start: 20110531

REACTIONS (2)
  - CARDIAC ARREST [None]
  - DYSPNOEA [None]
